FAERS Safety Report 7888011-5 (Version None)
Quarter: 2011Q4

REPORT INFORMATION
  Report Type: 
  Country: None (occurrence: None)
  Receive Date: 20111103
  Receipt Date: 20111025
  Transmission Date: 20120403
  Serious: Yes (Hospitalization)
  Sender: FDA-Public Use
  Company Number: GB-JNJFOC-20111011289

PATIENT
  Age: 83 Year
  Sex: Female

DRUGS (7)
  1. PREDNISOLONE [Concomitant]
  2. REMICADE [Suspect]
     Indication: RHEUMATOID ARTHRITIS
     Route: 042
     Dates: start: 20060815
  3. LEFLUNOMIDE [Concomitant]
  4. AMLODIPINE [Concomitant]
  5. DIHYDROCODEINE BITARTRATE INJ [Concomitant]
  6. REMICADE [Suspect]
     Route: 042
     Dates: start: 20070115
  7. ZOMIG [Concomitant]

REACTIONS (1)
  - ATRIOVENTRICULAR BLOCK COMPLETE [None]
